FAERS Safety Report 9553387 (Version 1)
Quarter: 2013Q3

REPORT INFORMATION
  Report Type: Spontaneous
  Country: US (occurrence: None)
  Receive Date: 20130724
  Receipt Date: 20130724
  Transmission Date: 20140515
  Serious: Yes (Other)
  Sender: FDA-Public Use
  Company Number: PHEH2012US009575

PATIENT
  Age: 53 Year
  Sex: Female
  Weight: 48.5 kg

DRUGS (18)
  1. RECLAST [Suspect]
     Indication: OSTEOPOROSIS
     Route: 042
     Dates: start: 20120326
  2. CELLCEPT (MYCOPHENOLATE MOFETIL) [Concomitant]
  3. PROGRAF (TACROLIMUS) [Concomitant]
  4. NOXAFIL (POSACONAZOLE) [Concomitant]
  5. TOPROL XL (METOPROLOL SUCCINATE [Concomitant]
  6. PREDNISONE (PREDNISONE) [Concomitant]
  7. MAGNESIUM (MAGNESIUM) [Concomitant]
  8. IRON (IRON) [Concomitant]
  9. AZITHROMYCIN (AZITHROMYCIN) [Concomitant]
  10. BACTRIM SULFAMETHOXAZOLE, TRIMETHOPRIM) [Concomitant]
  11. LIPITOR (ATORVASTATIN) [Concomitant]
  12. COQ10 (UBIDECARENONE) [Concomitant]
  13. COZAAR (LOSARTAN POTASSIUM) [Concomitant]
  14. VITAMIN D (ERGOCALCIFEROL) [Concomitant]
  15. COLECALCIFEROL (COLECALCIFEROL) [Concomitant]
  16. ANGIOTENSIN II (ANGIOTENSIN II) [Concomitant]
  17. IMMUNOGLOBULINS (IMMUNOGLOBULINS) [Concomitant]
  18. THYMOGLOBULINE (ANTITHYMOCYTE IMMUNOGLOBULIN (RABBIT)) [Concomitant]

REACTIONS (29)
  - Renal failure [None]
  - Renal impairment [None]
  - Confusional state [None]
  - Gout [None]
  - Feeling abnormal [None]
  - Gait disturbance [None]
  - Dysstasia [None]
  - Dehydration [None]
  - Erythema [None]
  - Somnolence [None]
  - Acute phase reaction [None]
  - Incorrect dose administered [None]
  - Thirst [None]
  - Mobility decreased [None]
  - Bone pain [None]
  - Night sweats [None]
  - Decreased appetite [None]
  - Asthenia [None]
  - Fatigue [None]
  - Myalgia [None]
  - Arthralgia [None]
  - Lethargy [None]
  - Pain [None]
  - Pain in extremity [None]
  - Oedema peripheral [None]
  - Nausea [None]
  - Vomiting [None]
  - Dizziness [None]
  - Chills [None]
